FAERS Safety Report 15947995 (Version 4)
Quarter: 2020Q1

REPORT INFORMATION
  Report Type: Spontaneous
  Country: US (occurrence: US)
  Receive Date: 20190211
  Receipt Date: 20200311
  Transmission Date: 20200409
  Serious: Yes (Other)
  Sender: FDA-Public Use
  Company Number: US-ASTRAZENECA-2019SE11526

PATIENT
  Age: 58 Year
  Sex: Male

DRUGS (44)
  1. AMIODARONE [Concomitant]
     Active Substance: AMIODARONE
  2. NORVASC [Concomitant]
     Active Substance: AMLODIPINE BESYLATE
  3. CLONIDINE. [Concomitant]
     Active Substance: CLONIDINE
  4. ONDANSETRON [Concomitant]
     Active Substance: ONDANSETRON
     Dates: start: 2012
  5. NEXIUM [Suspect]
     Active Substance: ESOMEPRAZOLE MAGNESIUM
     Indication: GASTROOESOPHAGEAL REFLUX DISEASE
     Dosage: 40.0MG UNKNOWN
     Route: 048
     Dates: start: 20120723
  6. KAYEXALATE [Concomitant]
     Active Substance: SODIUM POLYSTYRENE SULFONATE
  7. TUMS [Concomitant]
     Active Substance: CALCIUM CARBONATE
  8. TAGAMET [Concomitant]
     Active Substance: CIMETIDINE
  9. OXYCODONE ACETAMINOPHEN [Concomitant]
     Active Substance: ACETAMINOPHEN\OXYCODONE HYDROCHLORIDE
     Dates: start: 2012
  10. GABAPENTIN. [Concomitant]
     Active Substance: GABAPENTIN
     Dates: start: 2011, end: 2013
  11. PROTONIX [Suspect]
     Active Substance: PANTOPRAZOLE SODIUM
     Indication: GASTROOESOPHAGEAL REFLUX DISEASE
     Route: 065
  12. TRAMADOL. [Concomitant]
     Active Substance: TRAMADOL
  13. SIMVASTATIN. [Concomitant]
     Active Substance: SIMVASTATIN
     Dates: start: 2014
  14. ACARBOSE. [Concomitant]
     Active Substance: ACARBOSE
     Dates: start: 2017
  15. METFORMIN [Concomitant]
     Active Substance: METFORMIN HYDROCHLORIDE
     Dates: start: 2012
  16. LOMOTIL [Concomitant]
     Active Substance: ATROPINE SULFATE\DIPHENOXYLATE HYDROCHLORIDE
  17. LISINOPRIL. [Concomitant]
     Active Substance: LISINOPRIL
  18. CARVEDILOL. [Concomitant]
     Active Substance: CARVEDILOL
     Dates: start: 2011, end: 2015
  19. SERTRALINE [Concomitant]
     Active Substance: SERTRALINE HYDROCHLORIDE
     Dates: start: 2015
  20. PROTONIX [Suspect]
     Active Substance: PANTOPRAZOLE SODIUM
     Indication: GASTROOESOPHAGEAL REFLUX DISEASE
     Dosage: GENERIC
     Route: 065
  21. LIPITOR [Concomitant]
     Active Substance: ATORVASTATIN CALCIUM
     Dates: start: 2011
  22. LOVENOX [Concomitant]
     Active Substance: ENOXAPARIN SODIUM
  23. ROLAIDS [Concomitant]
     Active Substance: CALCIUM CARBONATE\MAGNESIUM HYDROXIDE
  24. RANITIDINE. [Concomitant]
     Active Substance: RANITIDINE
  25. NIFEDIPINE. [Concomitant]
     Active Substance: NIFEDIPINE
     Dates: start: 2012
  26. NEXIUM [Suspect]
     Active Substance: ESOMEPRAZOLE MAGNESIUM
     Indication: GASTROOESOPHAGEAL REFLUX DISEASE
     Route: 048
     Dates: start: 2007, end: 2015
  27. NEXIUM [Suspect]
     Active Substance: ESOMEPRAZOLE MAGNESIUM
     Indication: GASTROOESOPHAGEAL REFLUX DISEASE
     Dosage: GENERIC
     Route: 065
     Dates: start: 2015, end: 2018
  28. OMEPRAZOLE+SODIUM [Suspect]
     Active Substance: OMEPRAZOLE\SODIUM BICARBONATE
     Indication: GASTROOESOPHAGEAL REFLUX DISEASE
     Route: 065
  29. TYLENOL [Concomitant]
     Active Substance: ACETAMINOPHEN
  30. FUROSEMIDE. [Concomitant]
     Active Substance: FUROSEMIDE
  31. ACTOS [Concomitant]
     Active Substance: PIOGLITAZONE HYDROCHLORIDE
     Dates: start: 2012
  32. PEPTO-BISMOL [Concomitant]
     Active Substance: BISMUTH SUBSALICYLATE
  33. GLIPIZIDE. [Concomitant]
     Active Substance: GLIPIZIDE
     Dates: start: 2011, end: 2013
  34. TRADJENTA [Concomitant]
     Active Substance: LINAGLIPTIN
  35. PREDNISONE. [Concomitant]
     Active Substance: PREDNISONE
     Dates: start: 2017
  36. IBUPROFEN. [Concomitant]
     Active Substance: IBUPROFEN
     Dates: start: 2015
  37. ZOFRAN [Concomitant]
     Active Substance: ONDANSETRON HYDROCHLORIDE
  38. AZITHROMYCIN ANHYDROUS. [Concomitant]
     Active Substance: AZITHROMYCIN ANHYDROUS
     Dates: start: 2011
  39. AMOXICILLIN. [Concomitant]
     Active Substance: AMOXICILLIN
     Dates: start: 2013
  40. ZANTAC [Concomitant]
     Active Substance: RANITIDINE HYDROCHLORIDE
  41. PEPCID AC [Concomitant]
     Active Substance: FAMOTIDINE
  42. JANUVIA [Concomitant]
     Active Substance: SITAGLIPTIN PHOSPHATE
     Dates: start: 2012, end: 2014
  43. FERROUS SULFATE. [Concomitant]
     Active Substance: FERROUS SULFATE
     Dates: start: 2011
  44. CEPHALEXIN. [Concomitant]
     Active Substance: CEPHALEXIN

REACTIONS (6)
  - Renal failure [Unknown]
  - Renal injury [Unknown]
  - Chronic kidney disease [Unknown]
  - Acute kidney injury [Not Recovered/Not Resolved]
  - Renal tubular necrosis [Unknown]
  - Rebound acid hypersecretion [Unknown]

NARRATIVE: CASE EVENT DATE: 2010
